FAERS Safety Report 4627671-9 (Version None)
Quarter: 2005Q2

REPORT INFORMATION
  Report Type: 
  Country: None (occurrence: None)
  Receive Date: 20050401
  Receipt Date: 20050401
  Transmission Date: 20051028
  Serious: No
  Sender: FDA-Public Use
  Company Number: None

PATIENT
  Age: 65 Year
  Weight: 74.8435 kg

DRUGS (1)
  1. ZOMETA [Suspect]
     Indication: BONE NEOPLASM MALIGNANT
     Dosage: 1XS MONTH INTRA-ARTERIAL
     Route: 013
     Dates: start: 20020701, end: 20050301

REACTIONS (2)
  - JAW DISORDER [None]
  - OSTEONECROSIS [None]
